FAERS Safety Report 7921881-0 (Version None)
Quarter: 2011Q4

REPORT INFORMATION
  Report Type: 
  Country: None (occurrence: None)
  Receive Date: 20111117
  Receipt Date: 20111108
  Transmission Date: 20120403
  Serious: Yes (Hospitalization, Other)
  Sender: FDA-Public Use
  Company Number: US-ASTRAZENECA-2007UW15979

PATIENT
  Age: 56 Year
  Sex: Female
  Weight: 83.9 kg

DRUGS (16)
  1. CALCIUM CARBONATE [Concomitant]
  2. SEROQUEL [Suspect]
     Route: 048
  3. KLONOPIN [Concomitant]
     Dosage: TID PRN
  4. SEROQUEL [Suspect]
     Indication: DEPRESSION
     Route: 048
     Dates: start: 20000101
  5. SEROQUEL [Suspect]
     Route: 048
  6. SEROQUEL [Suspect]
     Route: 048
  7. KLONOPIN [Concomitant]
     Dosage: 3.5 TO 4
  8. ZOLOFT [Concomitant]
  9. SEROQUEL [Suspect]
     Indication: SCHIZOPHRENIA
     Route: 048
     Dates: start: 20000101
  10. SEROQUEL [Suspect]
     Route: 048
  11. LEVOTHYROXINE SODIUM [Concomitant]
  12. SEROQUEL [Suspect]
     Route: 048
  13. ZOLOFT [Concomitant]
  14. SEROQUEL [Suspect]
     Route: 048
  15. TOPAMAX [Concomitant]
  16. PAROXETINE HCL [Concomitant]

REACTIONS (11)
  - INCORRECT DOSE ADMINISTERED [None]
  - FEELING ABNORMAL [None]
  - FEAR [None]
  - SUICIDAL IDEATION [None]
  - PULSE ABNORMAL [None]
  - SCHIZOPHRENIA, UNDIFFERENTIATED TYPE [None]
  - DEPRESSION [None]
  - HYPOTENSION [None]
  - MENTAL DISORDER [None]
  - PANIC ATTACK [None]
  - MUSCLE TWITCHING [None]
